FAERS Safety Report 8817563 (Version 1)
Quarter: 2012Q4

REPORT INFORMATION
  Report Type: 
  Country: US (occurrence: US)
  Receive Date: 20121004
  Receipt Date: 20121004
  Transmission Date: 20130627
  Serious: No
  Sender: FDA-Public Use
  Company Number: US-ASTRAZENECA-2012SE73537

PATIENT
  Age: 14 Year
  Sex: Male
  Weight: 45.4 kg

DRUGS (3)
  1. SYMBICORT [Suspect]
     Indication: ASTHMA
     Dosage: 80 MCG 2 PUFFS ,TWO TIMES A DAY
     Route: 055
     Dates: start: 2011
  2. XOPENEX [Concomitant]
     Indication: RESPIRATORY DISORDER
  3. HALOG CREAM [Concomitant]
     Indication: ECZEMA

REACTIONS (2)
  - Staphylococcal infection [Unknown]
  - Off label use [Unknown]
